FAERS Safety Report 19846216 (Version 1)
Quarter: 2021Q3

REPORT INFORMATION
  Report Type: Spontaneous
  Country: US (occurrence: US)
  Receive Date: 20210916
  Receipt Date: 20210916
  Transmission Date: 20211014
  Serious: Yes (Hospitalization, Other)
  Sender: FDA-Public Use
  Company Number: US-SA-2021SA299940

PATIENT
  Age: 46 Year
  Sex: Female

DRUGS (1)
  1. AUBAGIO [Suspect]
     Active Substance: TERIFLUNOMIDE
     Indication: MULTIPLE SCLEROSIS
     Dosage: UNK
     Dates: end: 2021

REACTIONS (4)
  - Sepsis [Unknown]
  - Decreased immune responsiveness [Unknown]
  - Animal scratch [Unknown]
  - Alopecia [Unknown]

NARRATIVE: CASE EVENT DATE: 202107
